FAERS Safety Report 7364911-X (Version None)
Quarter: 2011Q1

REPORT INFORMATION
  Report Type: 
  Country: None (occurrence: None)
  Receive Date: 20110316
  Receipt Date: 20110316
  Transmission Date: 20110831
  Serious: Yes (Hospitalization)
  Sender: FDA-Public Use
  Company Number: None

PATIENT
  Age: 86 Year
  Sex: Male
  Weight: 81 kg

DRUGS (1)
  1. SIMVASTATIN [Suspect]
     Indication: HYPERLIPIDAEMIA
     Dosage: 20 MG HS PO
     Route: 048
     Dates: start: 20031023, end: 20100909

REACTIONS (4)
  - RIB FRACTURE [None]
  - URINARY TRACT INFECTION [None]
  - RHABDOMYOLYSIS [None]
  - FALL [None]
